FAERS Safety Report 4427746-3 (Version None)
Quarter: 2004Q3

REPORT INFORMATION
  Report Type: 
  Country: None (occurrence: None)
  Receive Date: 20040817
  Receipt Date: 20040727
  Transmission Date: 20050211
  Serious: Yes (Hospitalization)
  Sender: FDA-Public Use
  Company Number: JP-GLAXOSMITHKLINE-B0341025A

PATIENT
  Age: 75 Year
  Sex: Female
  Weight: 48 kg

DRUGS (2)
  1. PAXIL [Suspect]
     Indication: DEPRESSION
     Dosage: 10MG PER DAY
     Route: 048
     Dates: start: 20040508, end: 20040731
  2. DEFEKTON [Suspect]
     Indication: SCHIZOPHRENIA
     Dosage: 75MG PER DAY
     Route: 048
     Dates: start: 20040723

REACTIONS (1)
  - EPILEPSY [None]
